FAERS Safety Report 18948118 (Version 1)
Quarter: 2021Q1

REPORT INFORMATION
  Report Type: Spontaneous
  Country: DE (occurrence: DE)
  Receive Date: 20210226
  Receipt Date: 20210226
  Transmission Date: 20210420
  Serious: Yes (Congenital Anomaly, Other)
  Sender: FDA-Public Use
  Company Number: DE-ELI_LILLY_AND_COMPANY-DE202102007866

PATIENT
  Age: 1 Day
  Weight: 2.39 kg

DRUGS (8)
  1. DULOXETINE HYDROCHLORIDE. [Suspect]
     Active Substance: DULOXETINE HYDROCHLORIDE
     Indication: DEPRESSION
     Dosage: 30 MG, BID
     Route: 064
     Dates: start: 20200128
  2. DULOXETINE HYDROCHLORIDE. [Suspect]
     Active Substance: DULOXETINE HYDROCHLORIDE
     Indication: DEPRESSION
     Dosage: 30 MG, BID
     Route: 064
     Dates: start: 20200128
  3. FOLIO [FOLIC ACID;POTASSIUM IODIDE] [Concomitant]
     Indication: PROPHYLAXIS OF NEURAL TUBE DEFECT
     Dosage: 0.4 MG, DAILY
     Route: 048
     Dates: start: 20200128, end: 20201104
  4. DULOXETINE HYDROCHLORIDE. [Suspect]
     Active Substance: DULOXETINE HYDROCHLORIDE
     Dosage: 30 MG, DAILY
     Route: 064
     Dates: end: 20200610
  5. QUETIAPINE. [Suspect]
     Active Substance: QUETIAPINE
     Indication: SLEEP DISORDER
     Dosage: 25 MG, DAILY
     Route: 064
     Dates: start: 20200128, end: 20201104
  6. QUETIAPINE. [Suspect]
     Active Substance: QUETIAPINE
     Indication: SLEEP DISORDER
     Dosage: 25 MG, DAILY
     Route: 064
     Dates: start: 20200128, end: 20201104
  7. FOLIO [FOLIC ACID;POTASSIUM IODIDE] [Concomitant]
     Indication: PROPHYLAXIS OF NEURAL TUBE DEFECT
     Dosage: 0.4 MG, DAILY
     Route: 048
     Dates: start: 20200128, end: 20201104
  8. DULOXETINE HYDROCHLORIDE. [Suspect]
     Active Substance: DULOXETINE HYDROCHLORIDE
     Dosage: 30 MG, DAILY
     Route: 064
     Dates: end: 20200610

REACTIONS (10)
  - Hypotonia neonatal [Recovered/Resolved]
  - Respiratory disorder neonatal [Recovered/Resolved]
  - Hypoglycaemia neonatal [Recovered/Resolved]
  - Pulmonary artery stenosis [Unknown]
  - Thrombocytopenia neonatal [Recovered/Resolved]
  - Atrial septal defect [Unknown]
  - Small for dates baby [Unknown]
  - Foetal exposure during pregnancy [Recovered/Resolved]
  - Cardiac septal hypertrophy [Unknown]
  - Coarctation of the aorta [Recovered/Resolved with Sequelae]

NARRATIVE: CASE EVENT DATE: 20200128
